FAERS Safety Report 6639151-X (Version None)
Quarter: 2010Q1

REPORT INFORMATION
  Report Type: 
  Country: None (occurrence: None)
  Receive Date: 20100312
  Receipt Date: 20100304
  Transmission Date: 20100710
  Serious: Yes (Hospitalization)
  Sender: FDA-Public Use
  Company Number: 96338

PATIENT
  Age: 68 Year
  Sex: Male

DRUGS (2)
  1. CYTARABINE [Suspect]
     Indication: ACUTE MYELOID LEUKAEMIA
     Dosage: 200MG/ M2/ DAYS 1-7
  2. DAUNORUBICIN HCL [Suspect]
     Indication: ACUTE MYELOID LEUKAEMIA
     Dosage: 45MG/ M2/ DAYS 1-3

REACTIONS (2)
  - RENAL FAILURE [None]
  - TUMOUR LYSIS SYNDROME [None]
